FAERS Safety Report 8031339-9 (Version None)
Quarter: 2012Q1

REPORT INFORMATION
  Report Type: 
  Country: None (occurrence: None)
  Receive Date: 20120109
  Receipt Date: 20120105
  Transmission Date: 20120608
  Serious: Yes (Hospitalization)
  Sender: FDA-Public Use
  Company Number: IT-GLAXOSMITHKLINE-B0773993A

PATIENT
  Sex: Female

DRUGS (3)
  1. ENALAPRIL MALEATE [Concomitant]
     Indication: HYPERTENSION
     Dosage: 5MG PER DAY
     Route: 048
  2. LAMICTAL [Suspect]
     Indication: TRIGEMINAL NEURALGIA
     Dosage: 100MG PER DAY
     Route: 048
     Dates: start: 20100823, end: 20100906
  3. TEGRETOL [Suspect]
     Indication: TRIGEMINAL NEURALGIA
     Dosage: 3TAB PER DAY
     Route: 048
     Dates: start: 20100823, end: 20100906

REACTIONS (6)
  - GAIT DISTURBANCE [None]
  - NAUSEA [None]
  - VOMITING [None]
  - DIZZINESS [None]
  - TREMOR [None]
  - HYPONATRAEMIA [None]
